FAERS Safety Report 4953851-9 (Version None)
Quarter: 2006Q1

REPORT INFORMATION
  Report Type: 
  Country: None (occurrence: None)
  Receive Date: 20060321
  Receipt Date: 20060308
  Transmission Date: 20060701
  Serious: Yes (Hospitalization)
  Sender: FDA-Public Use
  Company Number: AND_0289_2006

PATIENT
  Age: 9 Month
  Sex: Female
  Weight: 9.8 kg

DRUGS (1)
  1. DILTIAZEM HCL [Suspect]
     Dosage: DF ONCE PO
     Route: 048

REACTIONS (6)
  - ACCIDENTAL DRUG INTAKE BY CHILD [None]
  - ATRIOVENTRICULAR BLOCK COMPLETE [None]
  - BRADYCARDIA [None]
  - HYPOTENSION [None]
  - NODAL RHYTHM [None]
  - VOMITING [None]
